FAERS Safety Report 18867677 (Version 3)
Quarter: 2021Q2

REPORT INFORMATION
  Report Type: Report from Study
  Country: US (occurrence: US)
  Receive Date: 20210209
  Receipt Date: 20210401
  Transmission Date: 20210717
  Serious: No
  Sender: FDA-Public Use
  Company Number: NVSC2021US021477

PATIENT

DRUGS (1)
  1. KESIMPTA [Suspect]
     Active Substance: OFATUMUMAB
     Indication: PRODUCT USED FOR UNKNOWN INDICATION
     Route: 065

REACTIONS (6)
  - Feeling hot [Unknown]
  - Fatigue [Unknown]
  - Asthenia [Unknown]
  - Headache [Unknown]
  - Anxiety [Unknown]
  - Dyspnoea [Unknown]
